FAERS Safety Report 7892370-7 (Version None)
Quarter: 2011Q4

REPORT INFORMATION
  Report Type: 
  Country: None (occurrence: None)
  Receive Date: 20111103
  Receipt Date: 20111103
  Transmission Date: 20120403
  Serious: Yes (Other)
  Sender: FDA-Public Use
  Company Number: None

PATIENT
  Age: 60 Year
  Sex: Female
  Weight: 89.8122 kg

DRUGS (1)
  1. HUMIRA [Suspect]
     Indication: HEPATIC NEOPLASM MALIGNANT
     Dosage: 40MG QOWK SQ
     Route: 058

REACTIONS (4)
  - MYOSITIS [None]
  - RASH [None]
  - MOVEMENT DISORDER [None]
  - LUPUS-LIKE SYNDROME [None]
